FAERS Safety Report 5551072-2 (Version None)
Quarter: 2007Q4

REPORT INFORMATION
  Report Type: 
  Country: None (occurrence: None)
  Receive Date: 20071212
  Receipt Date: 20071210
  Transmission Date: 20080405
  Serious: Yes (Death, Hospitalization, Other)
  Sender: FDA-Public Use
  Company Number: FR-BRISTOL-MYERS SQUIBB COMPANY-14010029

PATIENT
  Age: 89 Year
  Sex: Male

DRUGS (7)
  1. ELISOR [Suspect]
  2. POTASSIUM CHLORIDE [Suspect]
  3. ASPEGIC 1000 [Suspect]
  4. NITRODERM [Suspect]
  5. BURINEX [Suspect]
  6. MOPRAL [Suspect]
  7. IKOREL [Suspect]

REACTIONS (2)
  - FALL [None]
  - SUBDURAL HAEMATOMA [None]
